FAERS Safety Report 5119960-9 (Version None)
Quarter: 2006Q3

REPORT INFORMATION
  Report Type: 
  Country: None (occurrence: None)
  Receive Date: 20060929
  Receipt Date: 20060920
  Transmission Date: 20061208
  Serious: Yes (Other)
  Sender: FDA-Public Use
  Company Number: 2006107707

PATIENT
  Sex: Female

DRUGS (1)
  1. XALATAN [Suspect]
     Indication: GLAUCOMA
     Dosage: 3 MG (3 MG, 1 DROP IN EACH EYE DAILY), OPHTHALMIC
     Route: 047
     Dates: start: 20060801, end: 20060801

REACTIONS (6)
  - ASTHENIA [None]
  - DIZZINESS [None]
  - EYE PAIN [None]
  - FEELING ABNORMAL [None]
  - HEMIPLEGIA [None]
  - MALAISE [None]
